FAERS Safety Report 9712139 (Version 1)
Quarter: 2013Q4

REPORT INFORMATION
  Report Type: Spontaneous
  Country: US (occurrence: None)
  Receive Date: 20131125
  Receipt Date: 20131125
  Transmission Date: 20140711
  Serious: No
  Sender: FDA-Public Use
  Company Number: None

PATIENT
  Age: 68 Year
  Sex: Female
  Weight: 104.33 kg

DRUGS (1)
  1. MONTELUKAST SODIUM 10 MG DR. REDDY^S [Suspect]
     Indication: MULTIPLE ALLERGIES
     Dosage: 1 PILL; ONCE DAILY
     Route: 048

REACTIONS (5)
  - Wheezing [None]
  - Product substitution issue [None]
  - Pulmonary congestion [None]
  - Nervousness [None]
  - Drug ineffective [None]
